FAERS Safety Report 6661101-0 (Version None)
Quarter: 2010Q1

REPORT INFORMATION
  Report Type: 
  Country: None (occurrence: None)
  Receive Date: 20100331
  Receipt Date: 20100120
  Transmission Date: 20100710
  Serious: Yes (Other)
  Sender: FDA-Public Use
  Company Number: US-ROCHE-693633

PATIENT
  Sex: Male

DRUGS (3)
  1. AVASTIN [Suspect]
     Indication: RENAL CELL CARCINOMA
     Route: 042
  2. TORISEL [Suspect]
     Indication: RENAL CELL CARCINOMA
     Dosage: REPORTED AS CONCENTRATE FOR SOLUTION FOR INFUSION
     Route: 042
     Dates: start: 20080801, end: 20090303
  3. INTERFERON [Suspect]
     Indication: RENAL CELL CARCINOMA
     Route: 065

REACTIONS (3)
  - HYPERTENSION [None]
  - NEOPLASM PROGRESSION [None]
  - RENAL IMPAIRMENT [None]
